FAERS Safety Report 10342819 (Version 1)
Quarter: 2014Q3

REPORT INFORMATION
  Report Type: Spontaneous
  Country: DE (occurrence: DE)
  Receive Date: 20140725
  Receipt Date: 20140725
  Transmission Date: 20150326
  Serious: Yes (Death, Other)
  Sender: FDA-Public Use
  Company Number: DE-GILEAD-2014-0109675

PATIENT
  Age: 19 Year
  Sex: Male

DRUGS (1)
  1. VISTIDE [Suspect]
     Active Substance: CIDOFOVIR
     Indication: PAPILLOMA VIRAL INFECTION
     Dosage: UNK
     Route: 065
     Dates: start: 2004, end: 2007

REACTIONS (2)
  - Drug ineffective [Fatal]
  - Off label use [Fatal]
